FAERS Safety Report 25552704 (Version 1)
Quarter: 2025Q3

REPORT INFORMATION
  Report Type: Spontaneous
  Country: US (occurrence: US)
  Receive Date: 20250715
  Receipt Date: 20250715
  Transmission Date: 20251021
  Serious: Yes (Hospitalization, Other)
  Sender: AUROBINDO
  Company Number: US-MLMSERVICE-20250625-PI554552-00307-1

PATIENT
  Age: 41 Year
  Sex: Female

DRUGS (1)
  1. TAMOXIFEN [Suspect]
     Active Substance: TAMOXIFEN
     Indication: Invasive ductal breast carcinoma
     Route: 065
     Dates: start: 202312, end: 202407

REACTIONS (2)
  - Liver injury [Recovered/Resolved]
  - Hypothyroidism [Recovered/Resolved]

NARRATIVE: CASE EVENT DATE: 20240701
